FAERS Safety Report 10444299 (Version 1)
Quarter: 2014Q3

REPORT INFORMATION
  Report Type: Spontaneous
  Country: US (occurrence: US)
  Receive Date: 20140910
  Receipt Date: 20140910
  Transmission Date: 20150326
  Serious: Yes (Other)
  Sender: FDA-Public Use
  Company Number: US-SA-2014SA122374

PATIENT
  Age: 60 Year
  Sex: Male
  Weight: 170 kg

DRUGS (13)
  1. TERBINAFINE [Concomitant]
     Active Substance: TERBINAFINE
     Indication: LOWER RESPIRATORY TRACT INFECTION FUNGAL
  2. GLIMEPIRIDE. [Concomitant]
     Active Substance: GLIMEPIRIDE
  3. SPIRONOLACTONE. [Concomitant]
     Active Substance: SPIRONOLACTONE
  4. PLAVIX [Suspect]
     Active Substance: CLOPIDOGREL BISULFATE
     Indication: PRODUCT USED FOR UNKNOWN INDICATION
     Route: 065
     Dates: start: 2010
  5. ELIQUIS [Suspect]
     Active Substance: APIXABAN
     Indication: CHEST PAIN
     Route: 065
     Dates: start: 2014
  6. AMOXICILLIN. [Concomitant]
     Active Substance: AMOXICILLIN
  7. ISOSORBIDE MONONITRATE. [Concomitant]
     Active Substance: ISOSORBIDE MONONITRATE
  8. LEVOTHYROXINE [Concomitant]
     Active Substance: LEVOTHYROXINE
  9. LISINOPRIL. [Concomitant]
     Active Substance: LISINOPRIL
  10. CRESTOR [Concomitant]
     Active Substance: ROSUVASTATIN CALCIUM
  11. AMIODARONE [Concomitant]
     Active Substance: AMIODARONE
  12. GABAPENTIN. [Concomitant]
     Active Substance: GABAPENTIN
  13. TEMAZEPAM. [Concomitant]
     Active Substance: TEMAZEPAM

REACTIONS (2)
  - Walking aid user [Unknown]
  - Arthralgia [Unknown]

NARRATIVE: CASE EVENT DATE: 2014
